FAERS Safety Report 7546688-8 (Version None)
Quarter: 2011Q2

REPORT INFORMATION
  Report Type: 
  Country: None (occurrence: None)
  Receive Date: 20110614
  Receipt Date: 20110610
  Transmission Date: 20111010
  Serious: Yes (Death, Hospitalization)
  Sender: FDA-Public Use
  Company Number: A0785167A

PATIENT
  Age: 52 Year
  Sex: Male
  Weight: 113.6 kg

DRUGS (6)
  1. VICODIN [Concomitant]
  2. GLUCOPHAGE [Concomitant]
  3. PRAVACHOL [Concomitant]
  4. AMARYL [Concomitant]
  5. LIPITOR [Concomitant]
  6. AVANDIA [Suspect]
     Indication: DIABETES MELLITUS
     Dosage: 8MG PER DAY
     Route: 048
     Dates: start: 20020221, end: 20041027

REACTIONS (3)
  - CONGESTIVE CARDIOMYOPATHY [None]
  - MYOCARDIAL ISCHAEMIA [None]
  - CARDIOMEGALY [None]
